FAERS Safety Report 8217938-X (Version None)
Quarter: 2012Q1

REPORT INFORMATION
  Report Type: 
  Country: None (occurrence: None)
  Receive Date: 20120319
  Receipt Date: 20120314
  Transmission Date: 20120608
  Serious: Yes (Other)
  Sender: FDA-Public Use
  Company Number: US-BAYER-201018743NA

PATIENT
  Sex: Male
  Weight: 77 kg

DRUGS (31)
  1. NEUTRA-PHOS [Concomitant]
  2. MONOPRIL [Concomitant]
  3. EPOGEN [Concomitant]
     Dosage: UNK
     Dates: start: 20011001, end: 20041001
  4. OPTIMARK [Suspect]
     Indication: IMAGING PROCEDURE
  5. FELODIPINE [Concomitant]
  6. GENGRAF [Concomitant]
  7. RAPAMUNE [Concomitant]
  8. MAGNEVIST [Suspect]
     Indication: IMAGING PROCEDURE
  9. PLAVIX [Concomitant]
  10. IRON [Concomitant]
     Dosage: UNK
     Dates: start: 20011001, end: 20041001
  11. OMNISCAN [Suspect]
     Indication: IMAGING PROCEDURE
     Dosage: UNK
     Dates: start: 20040701, end: 20040701
  12. MULTIHANCE [Suspect]
     Indication: IMAGING PROCEDURE
  13. MYCOPHENOLATE MOFETIL (CELLCEPT) [Concomitant]
  14. NEPHROVITE [VIT C,VIT H,B5,B12,B9,B3,B6,B2,B1 HCL] [Concomitant]
  15. VICODIN [Concomitant]
  16. PLENDIL [Concomitant]
  17. BACTRIM [Concomitant]
  18. GADOLINIUM IN UNSPECIFIED DRUG [Suspect]
     Dosage: UNK
     Dates: start: 20020410, end: 20020410
  19. OMNISCAN [Suspect]
     Indication: NUCLEAR MAGNETIC RESONANCE IMAGING BRAIN
     Dosage: UNK
     Dates: start: 20040718, end: 20040718
  20. PROHANCE [Suspect]
     Indication: IMAGING PROCEDURE
  21. METOPROLOL SUCCINATE [Concomitant]
  22. ZOLOFT [Concomitant]
  23. NEORAL [Concomitant]
  24. RENAGEL [Concomitant]
  25. OMNISCAN [Suspect]
  26. ENALAPRIL [Concomitant]
  27. PREDNISONE [Concomitant]
  28. CALCIUM CARBONATE [Concomitant]
  29. NEXIUM [Concomitant]
  30. ASPIRIN [Concomitant]
  31. ALTACE [Concomitant]

REACTIONS (25)
  - DEFORMITY [None]
  - SCAR [None]
  - SKIN TIGHTNESS [None]
  - PAIN IN EXTREMITY [None]
  - MYOSCLEROSIS [None]
  - ARTHRALGIA [None]
  - GENERAL PHYSICAL HEALTH DETERIORATION [None]
  - MOBILITY DECREASED [None]
  - SKIN HYPERTROPHY [None]
  - RASH PAPULAR [None]
  - JOINT STIFFNESS [None]
  - OEDEMA PERIPHERAL [None]
  - ALOPECIA [None]
  - ONYCHOMADESIS [None]
  - JOINT SWELLING [None]
  - NEUROPATHY PERIPHERAL [None]
  - NEPHROGENIC SYSTEMIC FIBROSIS [None]
  - RASH [None]
  - TRANSIENT ISCHAEMIC ATTACK [None]
  - PAIN [None]
  - SKIN INDURATION [None]
  - FIBROSIS [None]
  - OEDEMA [None]
  - SKIN PLAQUE [None]
  - JOINT RANGE OF MOTION DECREASED [None]
